FAERS Safety Report 10007219 (Version 1)
Quarter: 2014Q1

REPORT INFORMATION
  Report Type: Spontaneous
  Country: US (occurrence: US)
  Receive Date: 20140313
  Receipt Date: 20140313
  Transmission Date: 20141002
  Serious: No
  Sender: FDA-Public Use
  Company Number: US-SHIRE-US201400131

PATIENT
  Sex: 0

DRUGS (1)
  1. LIALDA [Suspect]
     Indication: PRODUCT USED FOR UNKNOWN INDICATION
     Dosage: 4.8 G (FOUR 1.2 G TABLETS), UNKNOWN (PER DAY)
     Route: 048
     Dates: start: 2014, end: 20140223

REACTIONS (1)
  - Headache [Not Recovered/Not Resolved]
